FAERS Safety Report 8281505-2 (Version None)
Quarter: 2012Q2

REPORT INFORMATION
  Report Type: 
  Country: None (occurrence: None)
  Receive Date: 20120413
  Receipt Date: 20120409
  Transmission Date: 20120825
  Serious: Yes (Other)
  Sender: FDA-Public Use
  Company Number: CN-PFIZER INC-2012087851

PATIENT
  Age: 64 Year
  Sex: Male

DRUGS (3)
  1. SOLU-MEDROL [Suspect]
     Dosage: 2 G, ONCE
     Route: 042
     Dates: start: 20120329, end: 20120329
  2. SOLU-MEDROL [Suspect]
     Indication: FISTULA
     Dosage: 2 G, ONCE
     Route: 042
     Dates: start: 20120327, end: 20120327
  3. SOLU-MEDROL [Suspect]
     Indication: MYELITIS
     Dosage: 2 G, ONCE
     Route: 042
     Dates: start: 20120326, end: 20120326

REACTIONS (3)
  - DYSSTASIA [None]
  - MUSCULAR WEAKNESS [None]
  - URINARY INCONTINENCE [None]
